FAERS Safety Report 5405824-X (Version None)
Quarter: 2007Q3

REPORT INFORMATION
  Report Type: 
  Country: None (occurrence: None)
  Receive Date: 20070806
  Receipt Date: 20070801
  Transmission Date: 20080115
  Serious: Yes (Death)
  Sender: FDA-Public Use
  Company Number: AU-NOVOPROD-266106

PATIENT

DRUGS (6)
  1. NOVOSEVEN [Suspect]
     Dosage: 2.4 MG, SINGLE
     Route: 042
     Dates: start: 20041015, end: 20041015
  2. ASPIRIN [Concomitant]
     Dates: end: 20041014
  3. HEPARIN LMW [Concomitant]
     Dates: end: 20041014
  4. PROTAMINE SULFATE [Concomitant]
  5. VASOPRESSIN [Concomitant]
     Dates: end: 20041015
  6. DDAVP [Concomitant]

REACTIONS (1)
  - CEREBROVASCULAR ACCIDENT [None]
